FAERS Safety Report 6476633-8 (Version None)
Quarter: 2009Q4

REPORT INFORMATION
  Report Type: 
  Country: None (occurrence: None)
  Receive Date: 20091203
  Receipt Date: 20091203
  Transmission Date: 20100525
  Serious: Yes (Disabling)
  Sender: FDA-Public Use
  Company Number: None

PATIENT
  Sex: Female
  Weight: 54.8852 kg

DRUGS (2)
  1. CIPROFLOXACIN [Suspect]
     Indication: LUNG INFECTION
     Dosage: 500 MG 2 TIMES/DAY 047 1 DOSE 09/14/2009 2 DOSES 09/15/2009
     Dates: start: 20090914
  2. CIPROFLOXACIN [Suspect]
     Indication: LUNG INFECTION
     Dosage: 500 MG 2 TIMES/DAY 047 1 DOSE 09/14/2009 2 DOSES 09/15/2009
     Dates: start: 20090915

REACTIONS (9)
  - ARTHRALGIA [None]
  - ARTHROPATHY [None]
  - ASTHENIA [None]
  - FEELING ABNORMAL [None]
  - MUSCLE SPASMS [None]
  - MUSCULAR WEAKNESS [None]
  - MUSCULOSKELETAL PAIN [None]
  - PAIN IN EXTREMITY [None]
  - TENDONITIS [None]
